FAERS Safety Report 10028099 (Version 1)
Quarter: 2014Q1

REPORT INFORMATION
  Report Type: Spontaneous
  Country: FR (occurrence: None)
  Receive Date: 20140319
  Receipt Date: 20140319
  Transmission Date: 20141002
  Serious: Yes (Life-Threatening)
  Sender: FDA-Public Use
  Company Number: FR-ALSI-201200303

PATIENT
  Sex: Male

DRUGS (1)
  1. OXYGEN [Suspect]
     Dosage: RESPIRATORY
     Dates: start: 20121010, end: 20121010

REACTIONS (5)
  - Underdose [None]
  - Oxygen saturation decreased [None]
  - Product packaging quantity issue [None]
  - Device failure [None]
  - Hypotension [None]
